FAERS Safety Report 6616884-2 (Version None)
Quarter: 2010Q1

REPORT INFORMATION
  Report Type: 
  Country: None (occurrence: None)
  Receive Date: 20100301
  Receipt Date: 20100218
  Transmission Date: 20100710
  Serious: Yes (Hospitalization)
  Sender: FDA-Public Use
  Company Number: 2010SP010129

PATIENT
  Sex: Female

DRUGS (9)
  1. REMERON [Suspect]
     Indication: DRUG USE FOR UNKNOWN INDICATION
     Dosage: 15 MG;PO ; 7.5 MG;PO
     Route: 048
     Dates: start: 20090909, end: 20090910
  2. REMERON [Suspect]
     Indication: DRUG USE FOR UNKNOWN INDICATION
     Dosage: 15 MG;PO ; 7.5 MG;PO
     Route: 048
     Dates: start: 20090911, end: 20090916
  3. DIOVAN HCT [Suspect]
     Indication: DRUG USE FOR UNKNOWN INDICATION
     Dosage: 6.25 MG;PO
     Route: 048
     Dates: end: 20090910
  4. BISOHEXAL (BISOPROLOL FUMARATE) [Suspect]
     Indication: DRUG USE FOR UNKNOWN INDICATION
     Dosage: 10 MG;PO
     Route: 048
     Dates: end: 20090910
  5. TORSEMIDE [Suspect]
     Indication: DRUG USE FOR UNKNOWN INDICATION
     Dosage: 5 MG;PO
     Route: 048
     Dates: end: 20090910
  6. LORAZEPAM [Suspect]
     Indication: DRUG USE FOR UNKNOWN INDICATION
     Dosage: 0.25 MG;PO
     Route: 048
     Dates: start: 20090909, end: 20090910
  7. METHIZOL [Concomitant]
  8. PLAVIX [Concomitant]
  9. SIMVADURA [Concomitant]

REACTIONS (6)
  - AGITATION [None]
  - ARRHYTHMIA [None]
  - ELECTROCARDIOGRAM QT PROLONGED [None]
  - FALL [None]
  - HYPOTENSION [None]
  - SEDATION [None]
